FAERS Safety Report 11883898 (Version 2)
Quarter: 2016Q1

REPORT INFORMATION
  Report Type: Report from Study
  Country: DE (occurrence: DE)
  Receive Date: 20160101
  Receipt Date: 20160201
  Transmission Date: 20160526
  Serious: Yes (Hospitalization)
  Sender: FDA-Public Use
  Company Number: DE-ABBVIE-15P-062-1528303-00

PATIENT
  Sex: Female

DRUGS (1)
  1. DUODOPA [Suspect]
     Active Substance: CARBIDOPA\LEVODOPA
     Indication: PARKINSON^S DISEASE
     Dosage: MD 7.0ML, CRD 5.0ML/H, CRN 4.0ML/H, ED 3.0ML
     Route: 050
     Dates: start: 20141120

REACTIONS (2)
  - Decubitus ulcer [Not Recovered/Not Resolved]
  - Pyrexia [Not Recovered/Not Resolved]
